FAERS Safety Report 15436054 (Version 1)
Quarter: 2018Q3

REPORT INFORMATION
  Report Type: Spontaneous
  Country: US (occurrence: US)
  Receive Date: 20180927
  Receipt Date: 20180927
  Transmission Date: 20181010
  Serious: No
  Sender: FDA-Public Use
  Company Number: US-PFIZER INC-2018386198

PATIENT
  Age: 70 Year
  Sex: Male
  Weight: 107.9 kg

DRUGS (1)
  1. ADVIL LIQUI?GELS [Suspect]
     Active Substance: IBUPROFEN
     Indication: PAIN IN EXTREMITY
     Dosage: 600 MG, 1X/DAY [3 EXPIRED ADVIL THE NIGHT BEFORE, ON 18SEP2018 ]
     Dates: start: 20180918

REACTIONS (4)
  - Intentional product misuse [Unknown]
  - Malaise [Recovering/Resolving]
  - Expired product administered [Unknown]
  - Thinking abnormal [Unknown]

NARRATIVE: CASE EVENT DATE: 20180918
